FAERS Safety Report 8530308-X (Version None)
Quarter: 2012Q3

REPORT INFORMATION
  Report Type: 
  Country: None (occurrence: None)
  Receive Date: 20120723
  Receipt Date: 20120719
  Transmission Date: 20120928
  Serious: Yes (Hospitalization, Other)
  Sender: FDA-Public Use
  Company Number: US-PFIZER INC-2012175051

PATIENT
  Sex: Female
  Weight: 58.957 kg

DRUGS (11)
  1. TRAZODONE [Concomitant]
     Indication: SLEEP DISORDER
     Dosage: 50 MG, 1X/DAY
  2. ALPRAZOLAM [Concomitant]
     Indication: DEPRESSION
     Dosage: UNK
  3. COLCRYS [Concomitant]
     Indication: GOUTY ARTHRITIS
     Dosage: 0.6 MG, 2X/DAY
  4. CITALOPRAM [Concomitant]
     Indication: DEPRESSION
     Dosage: 20 MG, 1X/DAY
  5. OMEPRAZOLE [Concomitant]
     Indication: GASTROOESOPHAGEAL REFLUX DISEASE
     Dosage: 20 MG, 2X/DAY
  6. ALLOPURINOL [Concomitant]
     Indication: GOUTY ARTHRITIS
     Dosage: 100 MG, 2X/DAY
  7. CELEBREX [Suspect]
     Indication: OSTEOARTHRITIS
     Dosage: 200 MG, 1X/DAY
     Route: 048
     Dates: start: 19900101, end: 20030101
  8. LEVOTHYROXINE [Concomitant]
     Indication: THYROID DISORDER
     Dosage: 0.05 MG, 1X/DAY
  9. BENICAR HCT [Concomitant]
     Indication: BLOOD PRESSURE ABNORMAL
     Dosage: 40/25 MG, 1X/DAY
  10. PRAVASTATIN [Concomitant]
     Indication: BLOOD CHOLESTEROL ABNORMAL
     Dosage: 40 MG, 1X/DAY
  11. AMLODIPINE [Concomitant]
     Indication: BLOOD PRESSURE ABNORMAL
     Dosage: UNK, DAILY

REACTIONS (1)
  - ARTHROPATHY [None]
